FAERS Safety Report 7827371-8 (Version None)
Quarter: 2011Q4

REPORT INFORMATION
  Report Type: 
  Country: None (occurrence: None)
  Receive Date: 20111020
  Receipt Date: 20111014
  Transmission Date: 20120403
  Serious: Yes (Hospitalization)
  Sender: FDA-Public Use
  Company Number: IT-BRISTOL-MYERS SQUIBB COMPANY-16169948

PATIENT
  Age: 72 Year
  Sex: Male

DRUGS (10)
  1. OMEPRAZOLE [Concomitant]
     Route: 048
  2. CORDARONE [Concomitant]
     Dosage: 200MG, 1 UNIT.
  3. NAPRILENE [Concomitant]
  4. LEVOTHYROXINE SODIUM [Concomitant]
     Dosage: EUTIROX 50MCG 1 UNIT
  5. LASIX [Concomitant]
     Dosage: 25MG, 4 UNITS
  6. ASPIRIN [Suspect]
     Indication: PROPHYLAXIS
     Dosage: 1 DF: 1 UNIT
     Dates: start: 20110101, end: 20111008
  7. METFORMIN HCL [Concomitant]
  8. PREDNISONE [Concomitant]
     Route: 048
  9. COUMADIN [Suspect]
     Indication: PROPHYLAXIS
     Dosage: 1 DF: 1 UNIT
     Route: 048
     Dates: start: 20110101, end: 20111008
  10. MESTINON [Concomitant]
     Indication: OCULAR MYASTHENIA
     Dosage: 1 DF: 4 UNIT

REACTIONS (3)
  - EPISTAXIS [None]
  - ANAEMIA [None]
  - INTERNATIONAL NORMALISED RATIO INCREASED [None]
